FAERS Safety Report 4635820-1 (Version None)
Quarter: 2005Q2

REPORT INFORMATION
  Report Type: 
  Country: None (occurrence: None)
  Receive Date: 20050415
  Receipt Date: 20050404
  Transmission Date: 20051028
  Serious: Yes (Hospitalization, Other)
  Sender: FDA-Public Use
  Company Number: GB-JNJFOC-20050302293

PATIENT
  Sex: Male
  Weight: 76 kg

DRUGS (8)
  1. REMICADE [Suspect]
     Indication: RHEUMATOID ARTHRITIS
     Route: 042
  2. AZATHIOPRINE [Concomitant]
  3. CALCICHEW [Concomitant]
  4. CEPHRADINE [Concomitant]
  5. RANITIDINE [Concomitant]
  6. CO-DYDRAMOL [Concomitant]
  7. CO-DYDRAMOL [Concomitant]
  8. FOLIC ACID [Concomitant]

REACTIONS (1)
  - OESOPHAGEAL CARCINOMA [None]
